FAERS Safety Report 13364143 (Version 1)
Quarter: 2017Q1

REPORT INFORMATION
  Report Type: Spontaneous
  Country: US (occurrence: US)
  Receive Date: 20170322
  Receipt Date: 20170322
  Transmission Date: 20170429
  Serious: No
  Sender: FDA-Public Use
  Company Number: None

PATIENT
  Age: 26 Year
  Sex: Female

DRUGS (1)
  1. TEMOZOLOMIDE CAP 180MG [Suspect]
     Active Substance: TEMOZOLOMIDE

REACTIONS (5)
  - Pneumonia [None]
  - Dry skin [None]
  - Peripheral swelling [None]
  - Arthralgia [None]
  - Dysgeusia [None]

NARRATIVE: CASE EVENT DATE: 20170322
